FAERS Safety Report 6602175-2 (Version None)
Quarter: 2010Q1

REPORT INFORMATION
  Report Type: 
  Country: None (occurrence: None)
  Receive Date: 20100225
  Receipt Date: 20100223
  Transmission Date: 20100710
  Serious: Yes (Hospitalization)
  Sender: FDA-Public Use
  Company Number: JP-BAXTER-2010BH003342

PATIENT
  Age: 68 Year
  Sex: Male
  Weight: 59 kg

DRUGS (4)
  1. EXTRANEAL [Suspect]
     Indication: NEPHROSCLEROSIS
     Route: 033
     Dates: start: 20091001, end: 20100205
  2. DIANEAL LOW CALCIUM W/ DEXTROSE 1.5% [Suspect]
     Indication: NEPHROSCLEROSIS
     Route: 033
     Dates: start: 20090403
  3. CASODEX [Concomitant]
     Indication: PROSTATE CANCER
     Route: 048
     Dates: end: 20100205
  4. BICALUTAMIDE [Concomitant]
     Indication: DRUG USE FOR UNKNOWN INDICATION
     Route: 065
     Dates: start: 20100205

REACTIONS (3)
  - AMNESTIC DISORDER [None]
  - CONVULSION [None]
  - DEPRESSED LEVEL OF CONSCIOUSNESS [None]
